FAERS Safety Report 19469671 (Version 2)
Quarter: 2021Q3

REPORT INFORMATION
  Report Type: Report from Study
  Country: JP (occurrence: JP)
  Receive Date: 20210629
  Receipt Date: 20210824
  Transmission Date: 20211014
  Serious: Yes (Other)
  Sender: FDA-Public Use
  Company Number: JP-ROCHE-2858372

PATIENT
  Age: 73 Year
  Sex: Female
  Weight: 49.6 kg

DRUGS (23)
  1. CAPECITABINE. [Suspect]
     Active Substance: CAPECITABINE
     Dosage: 1200 MILLIGRAM
     Route: 048
     Dates: start: 20210526, end: 202106
  2. APREPITANT. [Concomitant]
     Active Substance: APREPITANT
     Dosage: 80 MILLIGRAM, QD
     Route: 048
     Dates: start: 20210429, end: 20210430
  3. BEVACIZUMAB. [Suspect]
     Active Substance: BEVACIZUMAB
     Route: 041
     Dates: start: 20210526
  4. CAPECITABINE. [Suspect]
     Active Substance: CAPECITABINE
     Indication: COLON CANCER
     Route: 048
     Dates: start: 20210428, end: 202105
  5. CAPECITABINE. [Suspect]
     Active Substance: CAPECITABINE
     Dosage: 1200 MILLIGRAM
     Route: 048
     Dates: start: 20210616
  6. OXALIPLATIN. [Concomitant]
     Active Substance: OXALIPLATIN
     Dosage: 195 MILLIGRAM, ONCE/3WEEKS
     Route: 041
     Dates: start: 20210526, end: 20210616
  7. PROEMEND [Concomitant]
     Active Substance: FOSAPREPITANT
     Dosage: 150 MILLIGRAM
     Route: 065
     Dates: start: 20210428, end: 20210428
  8. DEXART [Concomitant]
     Active Substance: DEXAMETHASONE SODIUM PHOSPHATE
     Dosage: 9.9 UNK, ONCE/3WEEKS
     Route: 041
     Dates: start: 20210428, end: 20210428
  9. ALOXI [Concomitant]
     Active Substance: PALONOSETRON HYDROCHLORIDE
     Dosage: 0.75 MILLIGRAM, ONCE/3WEEKS
     Route: 041
     Dates: start: 20210526, end: 20210616
  10. BEVACIZUMAB. [Suspect]
     Active Substance: BEVACIZUMAB
     Indication: COLON CANCER
     Route: 041
     Dates: start: 20210428, end: 20210428
  11. DEXART [Concomitant]
     Active Substance: DEXAMETHASONE SODIUM PHOSPHATE
     Dosage: 9.9 UNK, ONCE/3WEEKS
     Route: 041
     Dates: start: 20210526, end: 20210616
  12. APREPITANT. [Concomitant]
     Active Substance: APREPITANT
     Dosage: 80 MILLIGRAM, QD
     Route: 048
     Dates: start: 20210527, end: 20210618
  13. LOPERAMIDE HYDROCHLORIDE. [Concomitant]
     Active Substance: LOPERAMIDE HYDROCHLORIDE
     Route: 065
  14. DECADRON [Concomitant]
     Active Substance: DEXAMETHASONE
     Dosage: 8 MILLIGRAM, ONCE/3WEEKS
     Route: 048
     Dates: start: 20210429, end: 20210501
  15. OXALIPLATIN. [Concomitant]
     Active Substance: OXALIPLATIN
     Indication: COLON CANCER
     Dosage: 195 MILLIGRAM, ONCE/3WEEKS
     Route: 041
     Dates: start: 20210428, end: 20210428
  16. ALOXI [Concomitant]
     Active Substance: PALONOSETRON HYDROCHLORIDE
     Dosage: 0.75 MILLIGRAM, ONCE/3WEEKS
     Route: 041
     Dates: start: 20210428, end: 20210428
  17. DECADRON [Concomitant]
     Active Substance: DEXAMETHASONE
     Dosage: 8 MILLIGRAM, ONCE/3WEEKS
     Route: 048
     Dates: start: 20210527, end: 20210618
  18. IRINOTECAN HYDROCHLORIDE. [Concomitant]
     Active Substance: IRINOTECAN HYDROCHLORIDE
     Dosage: 300 MILLIGRAM
     Route: 041
     Dates: start: 20210526, end: 20210526
  19. PROEMEND [Concomitant]
     Active Substance: FOSAPREPITANT
     Dosage: 150 MILLIGRAM
     Route: 065
     Dates: start: 20210526, end: 20210616
  20. GASTER [Concomitant]
     Active Substance: FAMOTIDINE
     Dosage: 20 MILLIGRAM
     Route: 065
     Dates: start: 20210526, end: 20210616
  21. IRINOTECAN HYDROCHLORIDE. [Concomitant]
     Active Substance: IRINOTECAN HYDROCHLORIDE
     Indication: COLON CANCER
     Dosage: 300 MILLIGRAM
     Route: 041
     Dates: start: 20210428, end: 20210428
  22. IRINOTECAN HYDROCHLORIDE. [Concomitant]
     Active Substance: IRINOTECAN HYDROCHLORIDE
     Dosage: 300 MILLIGRAM
     Route: 041
     Dates: start: 20210616, end: 20210616
  23. GASTER [Concomitant]
     Active Substance: FAMOTIDINE
     Dosage: 20 MILLIGRAM
     Route: 065
     Dates: start: 20210428, end: 20210428

REACTIONS (2)
  - Hypokalaemia [Recovered/Resolved]
  - Enterocolitis [Unknown]

NARRATIVE: CASE EVENT DATE: 20210616
